FAERS Safety Report 7942833-0 (Version None)
Quarter: 2011Q4

REPORT INFORMATION
  Report Type: 
  Country: None (occurrence: None)
  Receive Date: 20111122
  Receipt Date: 20110816
  Transmission Date: 20120403
  Serious: Yes (Other)
  Sender: FDA-Public Use
  Company Number: PHHY2011US38506

PATIENT
  Age: 41 Year
  Sex: Female

DRUGS (1)
  1. GILENYA [Suspect]
     Dosage: 0.5 MG, DAILY, ORAL
     Route: 048
     Dates: start: 20110216

REACTIONS (5)
  - DEPRESSION [None]
  - MENSTRUATION IRREGULAR [None]
  - LISTLESS [None]
  - HEADACHE [None]
  - DECREASED INTEREST [None]
